FAERS Safety Report 7320447-3 (Version None)
Quarter: 2011Q1

REPORT INFORMATION
  Report Type: 
  Country: None (occurrence: None)
  Receive Date: 20110228
  Receipt Date: 20110217
  Transmission Date: 20110831
  Serious: Yes (Hospitalization)
  Sender: FDA-Public Use
  Company Number: B0695507A

PATIENT
  Sex: Female
  Weight: 40 kg

DRUGS (14)
  1. LIPITOR [Concomitant]
     Dosage: 5MG PER DAY
     Route: 048
     Dates: start: 20110111
  2. BAKTAR [Concomitant]
     Route: 048
     Dates: start: 20110111
  3. ARASENA-A [Concomitant]
     Route: 061
     Dates: start: 20110114
  4. DIFLUCAN [Concomitant]
     Dosage: 100MG PER DAY
     Route: 048
     Dates: start: 20110111
  5. VALTREX [Suspect]
     Indication: HERPES ZOSTER
     Dosage: 3000MG PER DAY
     Route: 048
     Dates: start: 20110114, end: 20110119
  6. CALFINA [Concomitant]
     Dosage: .5MCG PER DAY
     Route: 048
     Dates: start: 20110111
  7. MUCOSTA [Concomitant]
     Dosage: 300MG PER DAY
     Route: 048
     Dates: start: 20110111
  8. GASTER D [Concomitant]
     Dosage: 20MG PER DAY
     Route: 048
     Dates: start: 20110111
  9. MEDROL [Concomitant]
     Dosage: 20MG PER DAY
     Route: 048
     Dates: start: 20110111
  10. ZETIA [Concomitant]
     Dosage: 10MG PER DAY
     Route: 048
     Dates: start: 20110111
  11. FOSAMAC [Concomitant]
     Route: 048
     Dates: start: 20110111
  12. MOHRUS TAPE [Concomitant]
     Route: 062
     Dates: start: 20110111
  13. RHEUMATREX [Concomitant]
     Route: 048
     Dates: start: 20110111
  14. URSO 250 [Concomitant]
     Dosage: 600MG PER DAY
     Route: 048
     Dates: start: 20110111

REACTIONS (6)
  - BLOOD UREA INCREASED [None]
  - URINE OUTPUT DECREASED [None]
  - ASTHENIA [None]
  - RENAL FAILURE ACUTE [None]
  - PLATELET COUNT DECREASED [None]
  - BLOOD CREATININE INCREASED [None]
